FAERS Safety Report 25613721 (Version 1)
Quarter: 2025Q3

REPORT INFORMATION
  Report Type: Spontaneous
  Country: GB (occurrence: GB)
  Receive Date: 20250728
  Receipt Date: 20250728
  Transmission Date: 20251021
  Serious: Yes (Death, Life-Threatening, Hospitalization, Other)
  Sender: PFIZER
  Company Number: None

PATIENT
  Age: 53 Year
  Sex: Male
  Weight: 104 kg

DRUGS (8)
  1. METHOTREXATE SODIUM [Suspect]
     Active Substance: METHOTREXATE SODIUM
     Indication: Psoriatic arthropathy
     Dosage: 25 MG, WEEKLY
     Route: 058
     Dates: end: 20250714
  2. FOLIC ACID [Suspect]
     Active Substance: FOLIC ACID
     Dosage: 5 MG, DAILY (EXCEPT METHOTREXATE DAY)
     Route: 048
     Dates: end: 20250307
  3. ACETAMINOPHEN [Concomitant]
     Active Substance: ACETAMINOPHEN
  4. TRAZODONE [Concomitant]
     Active Substance: TRAZODONE HYDROCHLORIDE
  5. LOPERAMIDE [Concomitant]
     Active Substance: LOPERAMIDE
     Indication: Diarrhoea
  6. METHADONE [Concomitant]
     Active Substance: METHADONE HYDROCHLORIDE
     Indication: Drug dependence
  7. AMOXICILLIN [Concomitant]
     Active Substance: AMOXICILLIN
     Indication: Bacterial infection
     Dates: start: 20250721
  8. TINZAPARIN [Concomitant]
     Active Substance: TINZAPARIN

REACTIONS (26)
  - Cardiac arrest [Fatal]
  - Mucosal inflammation [Not Recovered/Not Resolved]
  - Neutropenia [Not Recovered/Not Resolved]
  - Thrombocytopenia [Not Recovered/Not Resolved]
  - Diarrhoea [Not Recovered/Not Resolved]
  - Liver function test abnormal [Not Recovered/Not Resolved]
  - Cold sweat [Not Recovered/Not Resolved]
  - Pallor [Not Recovered/Not Resolved]
  - Respiratory arrest [Unknown]
  - Hallucination, visual [Unknown]
  - Unresponsive to stimuli [Unknown]
  - Tongue ulceration [Not Recovered/Not Resolved]
  - Mouth ulceration [Not Recovered/Not Resolved]
  - Oral bacterial infection [Not Recovered/Not Resolved]
  - Neutropenic sepsis [Unknown]
  - Dehydration [Unknown]
  - Confusional state [Unknown]
  - Asthenia [Not Recovered/Not Resolved]
  - Fall [Unknown]
  - Illness [Unknown]
  - Poor dental condition [Unknown]
  - Cholelithiasis [Unknown]
  - Toxicity to various agents [Unknown]
  - Fatigue [Unknown]
  - Dizziness [Not Recovered/Not Resolved]
  - Off label use [Unknown]

NARRATIVE: CASE EVENT DATE: 20250701
